FAERS Safety Report 5653214-7 (Version None)
Quarter: 2008Q1

REPORT INFORMATION
  Report Type: 
  Country: None (occurrence: None)
  Receive Date: 20080306
  Receipt Date: 20080225
  Transmission Date: 20080703
  Serious: Yes (Life-Threatening, Hospitalization, Other)
  Sender: FDA-Public Use
  Company Number: US-ELI_LILLY_AND_COMPANY-US_981011079

PATIENT
  Age: 31 Year
  Sex: Female

DRUGS (1)
  1. ZYPREXA [Suspect]
     Indication: SCHIZOPHRENIA
     Dosage: 600 MG, UNKNOWN
     Route: 048

REACTIONS (7)
  - COMA [None]
  - DEPRESSED LEVEL OF CONSCIOUSNESS [None]
  - DRUG TOXICITY [None]
  - ENDOTRACHEAL INTUBATION [None]
  - INTENTIONAL OVERDOSE [None]
  - RESPIRATORY RATE DECREASED [None]
  - TACHYCARDIA [None]
